FAERS Safety Report 10695587 (Version 1)
Quarter: 2015Q1

REPORT INFORMATION
  Report Type: Spontaneous
  Country: US (occurrence: None)
  Receive Date: 20150106
  Receipt Date: 20150106
  Transmission Date: 20150721
  Serious: Yes (Hospitalization)
  Sender: FDA-Public Use
  Company Number: None

PATIENT
  Age: 3 Year
  Sex: Female
  Weight: 15 kg

DRUGS (5)
  1. DOXORUBICIN HYDROCHLORIDE. [Suspect]
     Active Substance: DOXORUBICIN HYDROCHLORIDE
     Dates: end: 20141125
  2. VINCRISTINE SULFATE. [Suspect]
     Active Substance: VINCRISTINE SULFATE
     Dates: end: 20141201
  3. ETOPOSIDE (VP-16) [Suspect]
     Active Substance: ETOPOSIDE
     Dates: end: 20141219
  4. CYCLOPHOSPHAMIDE. [Suspect]
     Active Substance: CYCLOPHOSPHAMIDE
     Dates: end: 20141124
  5. IFOSFAMIDE. [Concomitant]
     Active Substance: IFOSFAMIDE
     Dates: end: 20141219

REACTIONS (11)
  - Empyema [None]
  - Ventricular dysfunction [None]
  - Pyrexia [None]
  - Staphylococcus test positive [None]
  - Effusion [None]
  - Staphylococcal infection [None]
  - Enterococcal sepsis [None]
  - Heart sounds abnormal [None]
  - Neutropenia [None]
  - Respiratory distress [None]
  - Urosepsis [None]

NARRATIVE: CASE EVENT DATE: 20150102
